FAERS Safety Report 5290787-0 (Version None)
Quarter: 2007Q2

REPORT INFORMATION
  Report Type: 
  Country: None (occurrence: None)
  Receive Date: 20070409
  Receipt Date: 20070327
  Transmission Date: 20071010
  Serious: Yes (Other)
  Sender: FDA-Public Use
  Company Number: CA-PFIZER INC-2007025686

PATIENT
  Age: 44 Year
  Sex: Female

DRUGS (10)
  1. LYRICA [Suspect]
     Indication: PAIN
     Route: 048
  2. PREDNISONE [Concomitant]
     Route: 048
  3. REQUIP [Concomitant]
     Route: 048
  4. PLAQUENIL [Concomitant]
     Route: 048
  5. CLONAZEPAM [Concomitant]
     Route: 048
  6. VOLTAREN [Concomitant]
     Route: 048
  7. TYLENOL W/ CODEINE NO. 3 [Concomitant]
     Route: 048
  8. LOSEC [Concomitant]
     Route: 048
  9. WARFARIN SODIUM [Concomitant]
     Route: 048
  10. IMURAN [Concomitant]
     Route: 048

REACTIONS (2)
  - MOUTH ULCERATION [None]
  - ULCER HAEMORRHAGE [None]
